FAERS Safety Report 5968418-3 (Version None)
Quarter: 2008Q4

REPORT INFORMATION
  Report Type: 
  Country: None (occurrence: None)
  Receive Date: 20081126
  Receipt Date: 20081124
  Transmission Date: 20090506
  Serious: Yes (Death)
  Sender: FDA-Public Use
  Company Number: NZ-BRISTOL-MYERS SQUIBB COMPANY-14371538

PATIENT
  Age: 50 Year
  Sex: Male
  Weight: 126 kg

DRUGS (5)
  1. ABILIFY [Suspect]
     Indication: PSYCHOTIC DISORDER
     Dosage: DOSAGE INCREASED FROM 10MG TO 30MG.
     Route: 048
     Dates: start: 20080812
  2. METFORMIN HCL [Suspect]
  3. OLANZAPINE [Suspect]
     Indication: PSYCHOTIC DISORDER
     Dosage: DOSAGE TAPERED FROM 30MG TO 15MG.
     Route: 048
  4. BENZTROPINE MESYLATE [Suspect]
     Indication: EXTRAPYRAMIDAL DISORDER
     Route: 048
  5. OMEPRAZOLE [Suspect]
     Indication: GASTROOESOPHAGEAL REFLUX DISEASE

REACTIONS (2)
  - INSOMNIA [None]
  - MYOCARDIAL ISCHAEMIA [None]
